FAERS Safety Report 19606432 (Version 1)
Quarter: 2021Q3

REPORT INFORMATION
  Report Type: Report from Study
  Country: BR (occurrence: BR)
  Receive Date: 20210725
  Receipt Date: 20210725
  Transmission Date: 20211014
  Serious: Yes (Other)
  Sender: FDA-Public Use
  Company Number: NVSC2019BR017614

PATIENT
  Sex: Male

DRUGS (1)
  1. OMNITROPE [Suspect]
     Active Substance: SOMATROPIN
     Indication: PRODUCT USED FOR UNKNOWN INDICATION
     Dosage: 3.2 MG, QD (7 TIMES WEEK) (STOED MORE THAN A YEAR AGO)
     Route: 065
     Dates: start: 20190817

REACTIONS (7)
  - Hypersensitivity [Recovered/Resolved]
  - Intraocular pressure increased [Unknown]
  - Intraocular pressure fluctuation [Unknown]
  - Eye swelling [Unknown]
  - Swelling [Unknown]
  - Mouth swelling [Unknown]
  - Nasal oedema [Unknown]
